FAERS Safety Report 20414235 (Version 1)
Quarter: 2022Q1

REPORT INFORMATION
  Report Type: Other
  Country: NL (occurrence: None)
  Receive Date: 20220202
  Receipt Date: 20220202
  Transmission Date: 20220424
  Serious: Yes (Other)
  Sender: FDA-Public Use
  Company Number: NL-Saptalis Pharmaceuticals,LLC-000172

PATIENT
  Age: 10 Year
  Sex: Female

DRUGS (4)
  1. TRIAMCINOLONE [Suspect]
     Active Substance: TRIAMCINOLONE
     Indication: Pericardial effusion
     Dosage: 420MG
     Route: 032
  2. PREDNISONE [Concomitant]
     Active Substance: PREDNISONE
     Indication: Pericardial effusion
  3. COLCHICINE [Concomitant]
     Active Substance: COLCHICINE
     Indication: Product used for unknown indication
  4. GENTAMICIN [Concomitant]
     Active Substance: GENTAMICIN
     Indication: Sclerotherapy
     Dosage: 80 MG

REACTIONS (3)
  - Fatigue [Unknown]
  - Asthenia [Recovering/Resolving]
  - Adrenal insufficiency [Unknown]
